FAERS Safety Report 8220709-1 (Version None)
Quarter: 2012Q1

REPORT INFORMATION
  Report Type: 
  Country: None (occurrence: None)
  Receive Date: 20120320
  Receipt Date: 20120309
  Transmission Date: 20120608
  Serious: Yes (Other)
  Sender: FDA-Public Use
  Company Number: US-JNJFOC-20120305211

PATIENT
  Sex: Male
  Weight: 68.04 kg

DRUGS (7)
  1. PREDNISONE [Concomitant]
     Indication: PRODUCT USED FOR UNKNOWN INDICATION
     Route: 048
     Dates: start: 20120208
  2. OXYCODONE HCL [Concomitant]
     Indication: PAIN
     Route: 065
     Dates: start: 20120101
  3. MULTI-VITAMINS [Concomitant]
     Indication: VITAMIN SUPPLEMENTATION
     Route: 065
  4. ZYTIGA [Suspect]
     Indication: PROSTATE CANCER METASTATIC
     Route: 048
     Dates: start: 20120208
  5. SENNA LAXATIVE [Concomitant]
     Indication: CONSTIPATION
     Route: 048
     Dates: start: 20120101
  6. GABAPENTIN [Concomitant]
     Indication: NEURALGIA
     Route: 065
     Dates: start: 20100701
  7. CHEMOTHERAPY [Suspect]
     Indication: PRODUCT USED FOR UNKNOWN INDICATION
     Route: 065

REACTIONS (3)
  - WEIGHT DECREASED [None]
  - PROSTATIC SPECIFIC ANTIGEN INCREASED [None]
  - DRUG INEFFECTIVE [None]
